FAERS Safety Report 7049363-1 (Version None)
Quarter: 2010Q4

REPORT INFORMATION
  Report Type: 
  Country: None (occurrence: None)
  Receive Date: 20101018
  Receipt Date: 20101004
  Transmission Date: 20110411
  Serious: Yes (Other)
  Sender: FDA-Public Use
  Company Number: BH-ROCHE-730641

PATIENT

DRUGS (10)
  1. MYCOPHENOLATE MOFETIL [Suspect]
     Route: 065
  2. CYCLOSPORINE [Suspect]
     Route: 065
  3. CYCLOSPORINE [Suspect]
     Route: 065
  4. AZA [Suspect]
     Route: 065
  5. PREDNISOLONE [Suspect]
     Route: 065
  6. TACROLIMUS [Suspect]
     Route: 065
  7. BASILIXIMAB [Suspect]
     Route: 065
  8. CALCINEURIN INHIBITOR NOS [Suspect]
     Route: 065
  9. SIROLIMUS [Suspect]
     Dosage: LOADING DOSE OF 5 MG DAILY FOR 5-7 DAYS
     Route: 065
  10. SIROLIMUS [Suspect]
     Dosage: DOSE: ADJUSTED TO MAINTAIN TARGET TROUGH SERUM LEVELS OF 5.0-8.0 NG/ML
     Route: 065

REACTIONS (15)
  - ANAEMIA [None]
  - CYTOMEGALOVIRUS INFECTION [None]
  - GRAFT DYSFUNCTION [None]
  - GRAFT LOSS [None]
  - HEPATOTOXICITY [None]
  - HYPERGLYCAEMIA [None]
  - INFECTION [None]
  - LEUKOPENIA [None]
  - LOBAR PNEUMONIA [None]
  - MOUTH ULCERATION [None]
  - PROTEINURIA [None]
  - THROMBOCYTOPENIA [None]
  - TRANSAMINASES INCREASED [None]
  - TRANSPLANT REJECTION [None]
  - URINARY TRACT INFECTION [None]
